FAERS Safety Report 7904581-2 (Version None)
Quarter: 2011Q4

REPORT INFORMATION
  Report Type: 
  Country: None (occurrence: None)
  Receive Date: 20111109
  Receipt Date: 20111028
  Transmission Date: 20120403
  Serious: Yes (Hospitalization)
  Sender: FDA-Public Use
  Company Number: US-GLAXOSMITHKLINE-A0871300A

PATIENT
  Sex: Male
  Weight: 163.2 kg

DRUGS (6)
  1. AVANDIA [Suspect]
     Indication: TYPE 2 DIABETES MELLITUS
     Dosage: 8MG PER DAY
     Route: 048
     Dates: end: 20040101
  2. ELAVIL [Concomitant]
  3. LISINOPRIL [Concomitant]
  4. PLENDIL [Concomitant]
  5. INSULIN [Concomitant]
  6. SALSALATE [Concomitant]
     Dates: end: 20040201

REACTIONS (3)
  - CARDIAC FAILURE CONGESTIVE [None]
  - HYPERTROPHIC CARDIOMYOPATHY [None]
  - CARDIOVASCULAR DISORDER [None]
